FAERS Safety Report 6286807-7 (Version None)
Quarter: 2009Q3

REPORT INFORMATION
  Report Type: 
  Country: None (occurrence: None)
  Receive Date: 20090727
  Receipt Date: 20090727
  Transmission Date: 20100115
  Serious: Yes (Hospitalization)
  Sender: FDA-Public Use
  Company Number: None

PATIENT
  Age: 70 Year
  Sex: Male
  Weight: 81.6475 kg

DRUGS (2)
  1. AMLODIPINE [Suspect]
     Dosage: 5 MGM QD PO
     Route: 048
     Dates: start: 20081001, end: 20090501
  2. AMLODIPINE [Suspect]

REACTIONS (2)
  - DYSPNOEA [None]
  - PULMONARY EMBOLISM [None]
